FAERS Safety Report 20962225 (Version 1)
Quarter: 2022Q2

REPORT INFORMATION
  Report Type: Report from Study
  Country: BR (occurrence: BR)
  Receive Date: 20220615
  Receipt Date: 20220615
  Transmission Date: 20220721
  Serious: Yes (Death, Other)
  Sender: FDA-Public Use
  Company Number: BR-CLOVIS ONCOLOGY-CLO-2022-000165

PATIENT

DRUGS (4)
  1. RUCAPARIB [Suspect]
     Active Substance: RUCAPARIB
     Indication: Ovarian epithelial cancer
     Dosage: 600 MILLIGRAM, BID
     Route: 048
     Dates: start: 20190805
  2. RUCAPARIB [Suspect]
     Active Substance: RUCAPARIB
     Dosage: 400 MILLIGRAM, BID
     Route: 048
     Dates: end: 20210110
  3. OMEPRAZOLE [Concomitant]
     Active Substance: OMEPRAZOLE
     Indication: Abdominal pain upper
     Dosage: UNK
     Route: 048
     Dates: start: 2009
  4. RIVAROXABAN [Concomitant]
     Active Substance: RIVAROXABAN
     Indication: Portal vein thrombosis
     Dosage: UNK
     Route: 048
     Dates: start: 20200227

REACTIONS (1)
  - Myelodysplastic syndrome [Fatal]

NARRATIVE: CASE EVENT DATE: 20211220
